FAERS Safety Report 4694098-3 (Version None)
Quarter: 2005Q2

REPORT INFORMATION
  Report Type: 
  Country: None (occurrence: None)
  Receive Date: 20050617
  Receipt Date: 20050602
  Transmission Date: 20051028
  Serious: Yes (Death)
  Sender: FDA-Public Use
  Company Number: 2005S1004364

PATIENT
  Age: 54 Year
  Sex: Female

DRUGS (2)
  1. CLOZAPINE [Suspect]
     Indication: SCHIZOPHRENIA
     Dosage: 100 MG; QD; PO; 200 MG; HS; PO
     Route: 048
     Dates: start: 20031001, end: 20050401
  2. CLOZAPINE [Suspect]
     Indication: SCHIZOPHRENIA
     Dosage: 100 MG; QD; PO; 200 MG; HS; PO
     Route: 048
     Dates: start: 20031001, end: 20050401

REACTIONS (1)
  - DEATH [None]
